FAERS Safety Report 21876103 (Version 4)
Quarter: 2023Q2

REPORT INFORMATION
  Report Type: Spontaneous
  Country: JP (occurrence: JP)
  Receive Date: 20230118
  Receipt Date: 20230413
  Transmission Date: 20230722
  Serious: Yes (Death, Hospitalization, Other)
  Sender: FDA-Public Use
  Company Number: JP-ONO-2022JP033508

PATIENT
  Age: 71 Year
  Sex: Male
  Weight: 67 kg

DRUGS (7)
  1. OPDIVO [Suspect]
     Active Substance: NIVOLUMAB
     Indication: Metastatic renal cell carcinoma
     Dosage: UNK
     Route: 041
     Dates: start: 201907, end: 20201222
  2. OPDIVO [Suspect]
     Active Substance: NIVOLUMAB
     Route: 041
     Dates: start: 202008
  3. OPDIVO [Suspect]
     Active Substance: NIVOLUMAB
     Dosage: TOTAL NUMBER OF ADMINISTRATIONS AT THE REPORTING HOSPITAL, 33 [240MG, 8 ADMINISTRATIONS; 480 MG, 25
     Route: 041
     Dates: start: 20210105, end: 20221115
  4. OPDIVO [Suspect]
     Active Substance: NIVOLUMAB
     Route: 041
     Dates: start: 20200904
  5. LOXOPROFEN SODIUM [Concomitant]
     Active Substance: LOXOPROFEN SODIUM
     Dosage: 2880MG, Q8H
     Route: 048
     Dates: start: 20221119, end: 20221221
  6. REBAMIPIDE [Concomitant]
     Active Substance: REBAMIPIDE
     Dosage: 4800MG, Q8H
     Route: 048
     Dates: start: 20221119, end: 20221221
  7. LEVOTHYROXINE SODIUM [Concomitant]
     Active Substance: LEVOTHYROXINE SODIUM
     Dosage: 37750MCG, Q8H
     Route: 048
     Dates: start: 20201110, end: 20221204

REACTIONS (2)
  - Acute kidney injury [Fatal]
  - Interstitial lung disease [Fatal]

NARRATIVE: CASE EVENT DATE: 20221204
